FAERS Safety Report 8909997 (Version 1)
Quarter: 2012Q4

REPORT INFORMATION
  Report Type: 
  Country: US (occurrence: US)
  Receive Date: 20121114
  Receipt Date: 20121114
  Transmission Date: 20130627
  Serious: No
  Sender: FDA-Public Use
  Company Number: US-ASTRAZENECA-2012SE83079

PATIENT
  Age: 40 Year
  Sex: Male

DRUGS (12)
  1. ZESTRIL [Suspect]
     Route: 048
     Dates: start: 20120601
  2. TOPROL XL [Suspect]
     Route: 048
     Dates: start: 20120601
  3. OMEPRAZOLE [Suspect]
     Route: 048
     Dates: start: 20120920, end: 20121020
  4. SEROQUEL [Suspect]
     Route: 048
     Dates: start: 20120919, end: 20121018
  5. SEROQUEL [Suspect]
     Route: 048
     Dates: start: 20121018
  6. ACETAMINOPHEN [Concomitant]
  7. NORVASC [Concomitant]
  8. ASPIRIN [Concomitant]
  9. LASIX [Concomitant]
  10. COUMADIN [Concomitant]
  11. NEURONTIN [Concomitant]
  12. NORCO [Concomitant]

REACTIONS (1)
  - Anxiety [Unknown]
